FAERS Safety Report 24447411 (Version 2)
Quarter: 2024Q4

REPORT INFORMATION
  Report Type: Spontaneous
  Country: FR (occurrence: FR)
  Receive Date: 20241016
  Receipt Date: 20241021
  Transmission Date: 20250114
  Serious: No
  Sender: NOVARTIS
  Company Number: FR-002147023-NVSC2024FR201861

PATIENT
  Age: 69 Year
  Sex: Male

DRUGS (7)
  1. TEGRETOL [Suspect]
     Active Substance: CARBAMAZEPINE
     Indication: Neuralgia
     Dosage: 400 MG, BID (TWO TABLETS MORNING AND EVENING)
     Route: 065
     Dates: start: 202307
  2. TEGRETOL [Suspect]
     Active Substance: CARBAMAZEPINE
     Dosage: 800 MG, BID MORNING (800MG) AND EVENING (800MG)
     Route: 065
     Dates: start: 202307
  3. TEGRETOL [Suspect]
     Active Substance: CARBAMAZEPINE
     Dosage: 200 MG, BID (MORNING AND EVENING)
     Route: 065
  4. TEGRETOL [Suspect]
     Active Substance: CARBAMAZEPINE
     Indication: Neuralgia
     Dosage: 80 ML, BID (LIQUID) (MORNING AND EVENING)
     Route: 065
     Dates: start: 2014
  5. TEGRETOL [Suspect]
     Active Substance: CARBAMAZEPINE
     Dosage: 3.25 ML, TID (3 TIMES A DAY, I.E.  195 MG A DAY)
     Route: 048
  6. TEGRETOL [Suspect]
     Active Substance: CARBAMAZEPINE
     Dosage: 4.6 L
     Route: 065
  7. TEGRETOL [Suspect]
     Active Substance: CARBAMAZEPINE
     Dosage: UNK
     Route: 065
     Dates: start: 202404

REACTIONS (3)
  - Drug level abnormal [Unknown]
  - Fall [Unknown]
  - Cerebellar ataxia [Unknown]

NARRATIVE: CASE EVENT DATE: 20230801
